FAERS Safety Report 10982525 (Version 1)
Quarter: 2015Q2

REPORT INFORMATION
  Report Type: Spontaneous
  Country: IT (occurrence: None)
  Receive Date: 20150401
  Receipt Date: 20150401
  Transmission Date: 20150821
  Serious: Yes (Death)
  Sender: FDA-Public Use
  Company Number: 2015CYTIT00014

PATIENT

DRUGS (6)
  1. CYCLOPHOSPHAMIDE (CYCLOPHOSPHAMIDE) [Concomitant]
     Active Substance: CYCLOPHOSPHAMIDE
  2. CYTARABINE (CYTARABINE) LIPOSOME INJECTABLE SUSPENSION [Suspect]
     Active Substance: CYTARABINE
     Indication: PRODUCT USED FOR UNKNOWN INDICATION
     Dosage: WEEKLY INFUSION: ALTERNATING INTRATHECAL METHOTREXATE OR CYTARABINE, INTRATHECAL
     Route: 037
  3. METHOTREXATE (METHOTREXATE SODIUM) [Concomitant]
     Active Substance: METHOTREXATE SODIUM
  4. DOXORUBICIN (DOXORUBICIN HYDROCHLORIDE) [Concomitant]
  5. CISPLATIN (CISPLATIN) [Concomitant]
     Active Substance: CISPLATIN
  6. VINCRISTINE (VINCRISTINE SULFATE) [Concomitant]
     Active Substance: VINCRISTINE SULFATE

REACTIONS (1)
  - Cardiac failure acute [None]
